FAERS Safety Report 7524823-5 (Version None)
Quarter: 2011Q2

REPORT INFORMATION
  Report Type: 
  Country: None (occurrence: None)
  Receive Date: 20110606
  Receipt Date: 20110601
  Transmission Date: 20111010
  Serious: No
  Sender: FDA-Public Use
  Company Number: US-PFIZER INC-2011119364

PATIENT
  Sex: Female
  Weight: 50 kg

DRUGS (7)
  1. METOPROLOL [Concomitant]
     Indication: HYPERTENSION
     Dosage: UNK
  2. LOVASTATIN [Concomitant]
     Indication: BLOOD CHOLESTEROL INCREASED
     Dosage: UNK
  3. CENTRUM SILVER [Concomitant]
     Dosage: UNK
  4. NORVASC [Suspect]
     Indication: HYPERTENSION
     Dosage: 5 MG, DAILY
     Route: 048
     Dates: start: 20100101
  5. MULTI-VITAMINS [Concomitant]
     Dosage: UNK
  6. ACETYLSALICYLIC ACID [Concomitant]
     Dosage: 325 MG, DAILY
  7. VITAMIN E [Concomitant]
     Dosage: 400 MG, DAILY

REACTIONS (3)
  - BURNING SENSATION [None]
  - PARAESTHESIA [None]
  - PAIN IN EXTREMITY [None]
